FAERS Safety Report 8997512 (Version 1)
Quarter: 2013Q1

REPORT INFORMATION
  Report Type: Spontaneous
  Country: US (occurrence: US)
  Receive Date: 20130104
  Receipt Date: 20130104
  Transmission Date: 20140127
  Serious: Yes (Other)
  Sender: FDA-Public Use
  Company Number: US-ACTELION-A-US2012-77110

PATIENT
  Sex: Female

DRUGS (1)
  1. VELETRI [Suspect]
     Indication: PULMONARY ARTERIAL HYPERTENSION
     Dosage: UNK
     Route: 042

REACTIONS (1)
  - Cardiac failure high output [Unknown]
